FAERS Safety Report 20648706 (Version 2)
Quarter: 2022Q2

REPORT INFORMATION
  Report Type: Report from Study
  Country: DK (occurrence: DK)
  Receive Date: 20220329
  Receipt Date: 20220607
  Transmission Date: 20220721
  Serious: Yes (Other)
  Sender: FDA-Public Use
  Company Number: DK-TAKEDA-2022TUS018862

PATIENT
  Age: 65 Year
  Sex: Female

DRUGS (20)
  1. TEDUGLUTIDE [Suspect]
     Active Substance: TEDUGLUTIDE
     Indication: Short-bowel syndrome
     Route: 042
  2. TEDUGLUTIDE [Suspect]
     Active Substance: TEDUGLUTIDE
     Indication: Short-bowel syndrome
     Route: 042
  3. TEDUGLUTIDE [Suspect]
     Active Substance: TEDUGLUTIDE
     Indication: Short-bowel syndrome
     Route: 042
  4. TEDUGLUTIDE [Suspect]
     Active Substance: TEDUGLUTIDE
     Indication: Short-bowel syndrome
     Route: 042
  5. KONAKION [Concomitant]
     Active Substance: PHYTONADIONE
     Indication: Lumbar puncture
     Dosage: 0.30 MILLIGRAM
     Route: 042
     Dates: start: 20210428, end: 20210428
  6. ACYCLOVIR [Concomitant]
     Active Substance: ACYCLOVIR
     Indication: Herpes zoster meningoencephalitis
     Dosage: 1000 MILLIGRAM, TID
     Route: 042
     Dates: start: 20210428, end: 20210513
  7. VALACYCLOVIR HYDROCHLORIDE [Concomitant]
     Active Substance: VALACYCLOVIR HYDROCHLORIDE
     Indication: Varicella zoster virus infection
     Dosage: 1000 MILLIGRAM, TID
     Route: 048
     Dates: start: 20210407, end: 20210414
  8. PREVENAR [Concomitant]
     Active Substance: PNEUMOCOCCAL 7-VALENT CONJUGATE VACCINE (DIPHTHERIA CRM197 PROTEIN)
     Indication: Pneumococcal immunisation
     Dosage: UNK, QD
     Route: 030
     Dates: start: 20171013, end: 20171013
  9. LOPERAMIDE [Concomitant]
     Active Substance: LOPERAMIDE
     Indication: Antidiarrhoeal supportive care
     Dosage: 4 MILLIGRAM, TID
     Route: 048
  10. WARFARIN [Concomitant]
     Active Substance: WARFARIN
     Indication: Anticoagulant therapy
     Dosage: 2.5 MILLIGRAM, QOD
     Route: 048
     Dates: start: 2007
  11. FERROFUMARAT [Concomitant]
     Indication: Supplementation therapy
     Dosage: 330 MILLIGRAM, BID
     Route: 048
  12. ESOMEPRAZOLE [Concomitant]
     Active Substance: ESOMEPRAZOLE
     Indication: Secretion discharge
     Dosage: 40 MILLIGRAM, BID
     Route: 042
  13. CHOLECALCIFEROL [Concomitant]
     Active Substance: CHOLECALCIFEROL
     Indication: Supplementation therapy
     Dosage: 3000 INTERNATIONAL UNIT
     Route: 030
  14. PROTOPIC [Concomitant]
     Active Substance: TACROLIMUS
     Indication: Hand dermatitis
     Dosage: UNK, QD
     Route: 062
     Dates: start: 201705
  15. ACLASTA [Concomitant]
     Active Substance: ZOLEDRONIC ACID
     Indication: Osteoporosis
     Dosage: 5 MILLIGRAM
     Route: 042
     Dates: start: 2017
  16. AZITHROMYCIN [Concomitant]
     Active Substance: AZITHROMYCIN
     Indication: Sinusitis
     Dosage: 1 GRAM, QD
     Route: 042
     Dates: start: 20180502, end: 20180505
  17. CEFUROXIME [Concomitant]
     Active Substance: CEFUROXIME
     Indication: Urinary tract infection
     Dosage: 1.5 MILLIGRAM, TID
     Route: 042
     Dates: start: 20180507, end: 20180511
  18. CIPROFLOXACIN [Concomitant]
     Active Substance: CIPROFLOXACIN
     Indication: Urinary tract infection
     Dosage: 400 MILLIGRAM, BID
     Route: 042
     Dates: start: 20180507, end: 20180511
  19. VANCOMYCIN [Concomitant]
     Active Substance: VANCOMYCIN
     Indication: Urinary tract infection
     Dosage: 1 GRAM, BID
     Route: 042
     Dates: start: 20180507, end: 20180511
  20. PNEUMOVAX 23 [Concomitant]
     Active Substance: PNEUMOCOCCAL VACCINE, POLYVALENT 23
     Indication: Pneumococcal infection
     Dosage: 1 UNK, QD
     Route: 030
     Dates: start: 20171204, end: 20171204

REACTIONS (1)
  - Hypergammaglobulinaemia benign monoclonal [Not Recovered/Not Resolved]

NARRATIVE: CASE EVENT DATE: 20210614
